FAERS Safety Report 6669849-9 (Version None)
Quarter: 2010Q2

REPORT INFORMATION
  Report Type: 
  Country: None (occurrence: None)
  Receive Date: 20100406
  Receipt Date: 20100112
  Transmission Date: 20101027
  Serious: No
  Sender: FDA-Public Use
  Company Number: US-ALLERGAN-0909532US

PATIENT
  Age: 45 Year
  Sex: Female

DRUGS (6)
  1. LATISSE [Suspect]
     Indication: GROWTH OF EYELASHES
     Dosage: 1 GTT, QHS
     Route: 061
     Dates: start: 20090201, end: 20090601
  2. LATISSE [Suspect]
     Dosage: EVERY OTHER NIGHT
     Dates: start: 20090601
  3. LATISSE [Suspect]
     Dosage: 1GTT QHS
     Dates: start: 20090101
  4. CONTRACEPTIVES NOS [Concomitant]
     Route: 048
  5. VISINE EYE DROPS [Concomitant]
     Indication: OCULAR HYPERAEMIA
     Dosage: UNK
  6. VISINE EYE DROPS [Concomitant]
     Indication: DRY EYE

REACTIONS (2)
  - MADAROSIS [None]
  - WRONG TECHNIQUE IN DRUG USAGE PROCESS [None]
